FAERS Safety Report 5424340-2 (Version None)
Quarter: 2007Q3

REPORT INFORMATION
  Report Type: 
  Country: None (occurrence: None)
  Receive Date: 20070727
  Receipt Date: 20070523
  Transmission Date: 20080115
  Serious: No
  Sender: FDA-Public Use
  Company Number: 263955

PATIENT
  Age: 54 Year
  Sex: Female

DRUGS (1)
  1. LEVEMIR [Suspect]
     Indication: INSULIN-REQUIRING TYPE II DIABETES MELLITUS
     Dosage: 14 IU, QD, SUBCUTANEOUS
     Route: 058
     Dates: start: 20070507, end: 20070512

REACTIONS (1)
  - ABDOMINAL DISCOMFORT [None]
